FAERS Safety Report 10411323 (Version 1)
Quarter: 2014Q3

REPORT INFORMATION
  Report Type: Spontaneous
  Country: BR (occurrence: BR)
  Receive Date: 20140826
  Receipt Date: 20140826
  Transmission Date: 20150326
  Serious: Yes (Hospitalization)
  Sender: FDA-Public Use
  Company Number: BR-ASTRAZENECA-2014SE62671

PATIENT
  Sex: Female

DRUGS (17)
  1. RIVASTIGMINE [Concomitant]
     Active Substance: RIVASTIGMINE
     Indication: DEMENTIA ALZHEIMER^S TYPE
  2. SERTRALINE [Concomitant]
     Active Substance: SERTRALINE HYDROCHLORIDE
     Indication: DEMENTIA ALZHEIMER^S TYPE
  3. CLONAZEPAM. [Concomitant]
     Active Substance: CLONAZEPAM
     Indication: ANXIOLYTIC THERAPY
  4. CLONAZEPAM. [Concomitant]
     Active Substance: CLONAZEPAM
     Indication: DEMENTIA
  5. ENALAPRIL [Concomitant]
     Active Substance: ENALAPRIL
     Indication: BLOOD PRESSURE INADEQUATELY CONTROLLED
  6. CLONAZEPAM. [Concomitant]
     Active Substance: CLONAZEPAM
     Indication: DEMENTIA ALZHEIMER^S TYPE
  7. CARVEDILOL. [Concomitant]
     Active Substance: CARVEDILOL
     Indication: CARDIAC DISORDER
  8. FUROSEMIDE. [Concomitant]
     Active Substance: FUROSEMIDE
  9. BRILINTA [Suspect]
     Active Substance: TICAGRELOR
     Dosage: DAILY
     Route: 048
     Dates: start: 201402, end: 2014
  10. RISPERIDONE. [Concomitant]
     Active Substance: RISPERIDONE
  11. TRADJENTA [Concomitant]
     Active Substance: LINAGLIPTIN
     Indication: BLOOD TRIGLYCERIDES ABNORMAL
  12. AMLODIPINE [Concomitant]
     Active Substance: AMLODIPINE BESYLATE
  13. AMIODARONE [Concomitant]
     Active Substance: AMIODARONE
  14. ACETYLSALICYLIC ACID [Concomitant]
     Active Substance: ASPIRIN
  15. SERTRALINE [Concomitant]
     Active Substance: SERTRALINE HYDROCHLORIDE
     Indication: ANXIOLYTIC THERAPY
  16. SIMVASTATIN. [Concomitant]
     Active Substance: SIMVASTATIN
     Indication: BLOOD CHOLESTEROL ABNORMAL
  17. SERTRALINE [Concomitant]
     Active Substance: SERTRALINE HYDROCHLORIDE
     Indication: DEMENTIA

REACTIONS (5)
  - Blood pressure fluctuation [Recovered/Resolved]
  - Dehydration [Recovered/Resolved]
  - Off label use [Recovered/Resolved]
  - Renal failure [Recovered/Resolved]
  - Respiratory failure [Recovered/Resolved]

NARRATIVE: CASE EVENT DATE: 201402
